FAERS Safety Report 24888525 (Version 2)
Quarter: 2025Q1

REPORT INFORMATION
  Report Type: Spontaneous
  Country: US (occurrence: US)
  Receive Date: 20250127
  Receipt Date: 20250221
  Transmission Date: 20250408
  Serious: Yes (Hospitalization, Other)
  Sender: CSL BEHRING
  Company Number: US-BEH-2025192629

PATIENT
  Age: 8 Year
  Sex: Male

DRUGS (18)
  1. IDELVION [Suspect]
     Active Substance: COAGULATION FACTOR IX RECOMBINANT HUMAN
     Indication: Haemorrhagic disorder
     Dosage: 500 IU, QD (EVERY DAY FOR 14 DAYS
     Route: 042
     Dates: start: 20240906
  2. IDELVION [Suspect]
     Active Substance: COAGULATION FACTOR IX RECOMBINANT HUMAN
     Indication: Haemorrhagic disorder
     Dosage: 500 IU, QD (EVERY DAY FOR 14 DAYS
     Route: 042
     Dates: start: 20240906
  3. IDELVION [Suspect]
     Active Substance: COAGULATION FACTOR IX RECOMBINANT HUMAN
     Indication: Factor IX deficiency
     Dosage: 1000 IU, QD (EVERY DAY FOR 14 DAYS
     Route: 042
     Dates: start: 20240906
  4. IDELVION [Suspect]
     Active Substance: COAGULATION FACTOR IX RECOMBINANT HUMAN
     Indication: Factor IX deficiency
     Dosage: 1000 IU, QD (EVERY DAY FOR 14 DAYS
     Route: 042
     Dates: start: 20240906
  5. IDELVION [Suspect]
     Active Substance: COAGULATION FACTOR IX RECOMBINANT HUMAN
     Dosage: 3500 IU, QD (EVERY DAY FOR 14 DAYS
     Route: 042
     Dates: start: 20240906
  6. IDELVION [Suspect]
     Active Substance: COAGULATION FACTOR IX RECOMBINANT HUMAN
     Dosage: 3500 IU, QD (EVERY DAY FOR 14 DAYS
     Route: 042
     Dates: start: 20240906
  7. IDELVION [Suspect]
     Active Substance: COAGULATION FACTOR IX RECOMBINANT HUMAN
     Route: 042
     Dates: start: 20240906
  8. IDELVION [Suspect]
     Active Substance: COAGULATION FACTOR IX RECOMBINANT HUMAN
     Route: 042
     Dates: start: 20240906
  9. IDELVION [Suspect]
     Active Substance: COAGULATION FACTOR IX RECOMBINANT HUMAN
     Route: 042
     Dates: start: 20240906
  10. IDELVION [Suspect]
     Active Substance: COAGULATION FACTOR IX RECOMBINANT HUMAN
     Route: 042
     Dates: start: 20240906
  11. IDELVION [Suspect]
     Active Substance: COAGULATION FACTOR IX RECOMBINANT HUMAN
     Route: 042
     Dates: start: 20240906
  12. IDELVION [Suspect]
     Active Substance: COAGULATION FACTOR IX RECOMBINANT HUMAN
     Route: 042
     Dates: start: 20240906
  13. IDELVION [Suspect]
     Active Substance: COAGULATION FACTOR IX RECOMBINANT HUMAN
     Dosage: 3500 IU, QD (EVERY DAY FOR 14 DAYS)
     Route: 042
     Dates: start: 20231128
  14. IDELVION [Suspect]
     Active Substance: COAGULATION FACTOR IX RECOMBINANT HUMAN
     Dosage: 3500 IU, QD (EVERY DAY FOR 14 DAYS)
     Route: 042
     Dates: start: 20231128
  15. Hep lock [Concomitant]
  16. IRON [Concomitant]
     Active Substance: IRON
  17. SODIUM CHLORIDE [Concomitant]
     Active Substance: SODIUM CHLORIDE
  18. VITAMIN D3 [Concomitant]
     Active Substance: CHOLECALCIFEROL

REACTIONS (12)
  - Haemarthrosis [Unknown]
  - Haemorrhage [Not Recovered/Not Resolved]
  - Muscle haemorrhage [Unknown]
  - Injury [Unknown]
  - Muscle haemorrhage [Unknown]
  - Haemarthrosis [Unknown]
  - Pain [Not Recovered/Not Resolved]
  - Walking aid user [Unknown]
  - Gait disturbance [Not Recovered/Not Resolved]
  - Gait disturbance [Unknown]
  - Pain [Unknown]
  - Walking aid user [Unknown]

NARRATIVE: CASE EVENT DATE: 20250101
